FAERS Safety Report 22331621 (Version 1)
Quarter: 2023Q2

REPORT INFORMATION
  Report Type: Spontaneous
  Country: SE (occurrence: SE)
  Receive Date: 20230517
  Receipt Date: 20230517
  Transmission Date: 20230722
  Serious: Yes (Death)
  Sender: FDA-Public Use
  Company Number: None

PATIENT
  Age: 74 Year
  Sex: Female
  Weight: 59 kg

DRUGS (5)
  1. OXALIPLATIN [Suspect]
     Active Substance: OXALIPLATIN
     Indication: Colon cancer metastatic
     Dosage: 160 MG SINGLE DOSE, FIRST TREATMENT., STRENGTH: 5
     Dates: start: 20230302, end: 20230302
  2. LEVOTHYROXINE SODIUM [Concomitant]
     Active Substance: LEVOTHYROXINE SODIUM
     Dosage: 125 MCG X 1, STRENGTH: LEVOTHYROXINE
     Dates: start: 20171219, end: 20230403
  3. GABAPENTIN [Concomitant]
     Active Substance: GABAPENTIN
     Dosage: 100MG X 3, STRENGTH: 100 MG
     Dates: start: 20220726, end: 20230330
  4. GIMERACIL\OTERACIL\TEGAFUR [Concomitant]
     Active Substance: GIMERACIL\OTERACIL\OTERACIL POTASSIUM\TEGAFUR
     Dosage: 2 TABLETS 2 TIMES PER DAY,
     Dates: start: 20230302, end: 20230316
  5. BETAPRED [Concomitant]
     Active Substance: BETAMETHASONE SODIUM PHOSPHATE
     Dosage: TAPERING SCHEDULE OVER 4 DAYS,
     Dates: start: 20230304, end: 20230307

REACTIONS (1)
  - Venoocclusive liver disease [Fatal]

NARRATIVE: CASE EVENT DATE: 20230301
